FAERS Safety Report 7082788-7 (Version None)
Quarter: 2010Q4

REPORT INFORMATION
  Report Type: 
  Country: None (occurrence: None)
  Receive Date: 20101001
  Receipt Date: 20100629
  Transmission Date: 20110411
  Serious: No
  Sender: FDA-Public Use
  Company Number: 1000014796

PATIENT
  Age: 89 Year
  Sex: Female

DRUGS (4)
  1. BYSTOLIC [Suspect]
     Indication: HYPERTENSION
     Dosage: 10 MG (10 MG,1 IN 1 D),ORAL
     Route: 048
     Dates: start: 20100619
  2. VITAMIN D [Concomitant]
  3. ASPIRIN (81 MILLIGRAM, TABLETS) [Concomitant]
  4. VITAMINS [Concomitant]

REACTIONS (2)
  - DIZZINESS [None]
  - FATIGUE [None]
